FAERS Safety Report 20107012 (Version 12)
Quarter: 2022Q4

REPORT INFORMATION
  Report Type: Report from Study
  Country: US (occurrence: US)
  Receive Date: 20211124
  Receipt Date: 20221019
  Transmission Date: 20230113
  Serious: No
  Sender: FDA-Public Use
  Company Number: US-NOVARTISTESTPH-NVSC2021US268215

PATIENT
  Sex: Male

DRUGS (3)
  1. COSENTYX [Suspect]
     Active Substance: SECUKINUMAB
     Indication: Psoriasis
     Dosage: 150 MG, QW (ONCE WEEKLY FOR 5 WEEKS, THEN ONCE EVERY 4 WEEKS)
     Route: 058
     Dates: start: 20211021
  2. COSENTYX [Suspect]
     Active Substance: SECUKINUMAB
     Dosage: UNK
     Route: 065
  3. COSENTYX [Suspect]
     Active Substance: SECUKINUMAB
     Dosage: 150 MG, QMO
     Route: 058

REACTIONS (15)
  - Nail disorder [Unknown]
  - Streptococcal infection [Unknown]
  - Malaise [Unknown]
  - Macule [Unknown]
  - Scar [Unknown]
  - Dandruff [Unknown]
  - Growing pains [Recovering/Resolving]
  - Nail discolouration [Unknown]
  - Back pain [Recovering/Resolving]
  - Psoriasis [Not Recovered/Not Resolved]
  - Dry skin [Unknown]
  - Oropharyngeal pain [Recovered/Resolved]
  - COVID-19 [Recovered/Resolved]
  - Arthralgia [Recovering/Resolving]
  - Product prescribing issue [Unknown]
